FAERS Safety Report 8894474 (Version 1)
Quarter: 2012Q4

REPORT INFORMATION
  Report Type: 
  Country: US (occurrence: US)
  Receive Date: 20121108
  Receipt Date: 20121108
  Transmission Date: 20130627
  Serious: Yes (Other)
  Sender: FDA-Public Use
  Company Number: US-009507513-1211USA001284

PATIENT
  Sex: Female

DRUGS (2)
  1. SINGULAIR [Suspect]
     Indication: HYPERSENSITIVITY
     Dosage: UNK
     Route: 048
     Dates: start: 201204
  2. SINGULAIR [Suspect]
     Indication: ASTHMA

REACTIONS (8)
  - Spastic diplegia [Unknown]
  - Abnormal behaviour [Recovering/Resolving]
  - Anger [Recovering/Resolving]
  - Aggression [Recovering/Resolving]
  - Nightmare [Recovering/Resolving]
  - Muscle spasms [Recovering/Resolving]
  - Knee deformity [Unknown]
  - Withdrawal syndrome [Recovering/Resolving]
